FAERS Safety Report 9906055 (Version 1)
Quarter: 2014Q1

REPORT INFORMATION
  Report Type: Spontaneous
  Country: US (occurrence: US)
  Receive Date: 20140218
  Receipt Date: 20140218
  Transmission Date: 20141002
  Serious: No
  Sender: FDA-Public Use
  Company Number: US-GILEAD-2012-0055293

PATIENT
  Sex: Male

DRUGS (1)
  1. LETAIRIS [Suspect]
     Indication: PRODUCT USED FOR UNKNOWN INDICATION
     Dosage: UNK

REACTIONS (12)
  - Dizziness [Unknown]
  - Lethargy [Unknown]
  - Hypersensitivity [Unknown]
  - Dry mouth [Unknown]
  - Rhinorrhoea [Unknown]
  - Lacrimation increased [Unknown]
  - Lip dry [Unknown]
  - Presyncope [Unknown]
  - Fatigue [Unknown]
  - Headache [Unknown]
  - Dyspnoea [Unknown]
  - Drug ineffective [Unknown]
